FAERS Safety Report 21512454 (Version 3)
Quarter: 2023Q1

REPORT INFORMATION
  Report Type: Report from Study
  Country: FR (occurrence: FR)
  Receive Date: 20221027
  Receipt Date: 20230125
  Transmission Date: 20230418
  Serious: Yes (Hospitalization)
  Sender: FDA-Public Use
  Company Number: FR-ABBVIE-4174553

PATIENT
  Age: 36 Year
  Sex: Male
  Weight: 75 kg

DRUGS (3)
  1. UPADACITINIB [Suspect]
     Active Substance: UPADACITINIB
     Indication: Axial spondyloarthritis
     Route: 048
     Dates: start: 20220708, end: 20221019
  2. PARACETAMOL OPIUM POWDER [Concomitant]
     Indication: Axial spondyloarthritis
     Dosage: OCCASIONAL POWDER
     Route: 048
     Dates: start: 2018
  3. PREDNISONE [Concomitant]
     Active Substance: PREDNISONE
     Indication: Crohn^s disease
     Route: 048
     Dates: start: 20220915, end: 20220918

REACTIONS (1)
  - Crohn^s disease [Recovered/Resolved]

NARRATIVE: CASE EVENT DATE: 20221005
